FAERS Safety Report 7248060 (Version 5)
Quarter: 2013Q4

REPORT INFORMATION
  Report Type: Spontaneous
  Country: US (occurrence: US)
  Receive Date: 20100118
  Receipt Date: 20131226
  Transmission Date: 20140711
  Serious: Yes (Other)
  Sender: FDA-Public Use
  Company Number: US-BAYER-201010672NA

PATIENT
  Age: 30 Year
  Sex: Female
  Weight: 100 kg

DRUGS (5)
  1. OCELLA [Suspect]
     Indication: ORAL CONTRACEPTION
     Dosage: UNK
     Dates: start: 200703, end: 200906
  2. YASMIN [Suspect]
     Indication: ORAL CONTRACEPTION
     Dosage: UNK
     Dates: start: 200703, end: 200906
  3. YAZ [Suspect]
     Indication: ORAL CONTRACEPTION
     Dosage: UNK
     Dates: start: 200703, end: 200906
  4. CELEXA [Concomitant]
  5. ANTIBIOTICS [Concomitant]
     Indication: URINARY TRACT INFECTION

REACTIONS (9)
  - Cholecystitis chronic [Unknown]
  - Pain [Unknown]
  - Discomfort [Unknown]
  - Cholesterosis [None]
  - Abdominal distension [Unknown]
  - Muscle spasms [Unknown]
  - Flatulence [Unknown]
  - Nausea [Unknown]
  - Vomiting [Unknown]
